FAERS Safety Report 10009358 (Version 1)
Quarter: 2014Q1

REPORT INFORMATION
  Report Type: Spontaneous
  Country: US (occurrence: US)
  Receive Date: 20140313
  Receipt Date: 20140313
  Transmission Date: 20141002
  Serious: No
  Sender: FDA-Public Use
  Company Number: US-INCYTE CORPORATION-2012IN001508

PATIENT
  Age: 69 Year
  Sex: Male

DRUGS (8)
  1. JAKAFI [Suspect]
     Indication: MYELOFIBROSIS
     Dosage: 15 MG, BID
     Route: 048
     Dates: start: 2012
  2. FOLIC ACID [Concomitant]
  3. PREDNISONE [Concomitant]
  4. LASIX [Concomitant]
  5. LOPRESSOR [Concomitant]
  6. PRILOSEC [Concomitant]
  7. MAGNESIUM OXIDE [Concomitant]
  8. OXYCODONE [Concomitant]

REACTIONS (1)
  - Diarrhoea [Unknown]
